FAERS Safety Report 6753062-0 (Version None)
Quarter: 2010Q2

REPORT INFORMATION
  Report Type: 
  Country: None (occurrence: None)
  Receive Date: 20100601
  Receipt Date: 20100517
  Transmission Date: 20101027
  Serious: Yes (Death, Other)
  Sender: FDA-Public Use
  Company Number: A-NJ2010-35652

PATIENT
  Sex: Female

DRUGS (5)
  1. TRACLEER [Suspect]
     Indication: PULMONARY ARTERIAL HYPERTENSION
     Dosage: , ORAL, RESPIATORY
     Route: 048
     Dates: start: 20080527
  2. TRACLEER [Suspect]
     Indication: PULMONARY ARTERIAL HYPERTENSION
     Dosage: , ORAL, RESPIATORY
     Route: 048
     Dates: start: 20080528
  3. VENTAVIS [Suspect]
     Indication: PULMONARY ARTERIAL HYPERTENSION
     Dosage: RESOIRATORY
     Dates: start: 20080501
  4. VENTAVIS [Suspect]
  5. REVATIO [Concomitant]

REACTIONS (1)
  - LIVER FUNCTION TEST ABNORMAL [None]
